FAERS Safety Report 7823099-9 (Version None)
Quarter: 2011Q4

REPORT INFORMATION
  Report Type: 
  Country: None (occurrence: None)
  Receive Date: 20111019
  Receipt Date: 20111010
  Transmission Date: 20120403
  Serious: Yes (Other)
  Sender: FDA-Public Use
  Company Number: CH-BIOGENIDEC-2011BI035860

PATIENT
  Age: 42 Year
  Sex: Male
  Weight: 57 kg

DRUGS (4)
  1. TYSABRI [Suspect]
     Dates: start: 20110101, end: 20110801
  2. TYSABRI [Suspect]
     Indication: PRODUCT USED FOR UNKNOWN INDICATION
     Dates: start: 20080301, end: 20100301
  3. ACTILIFE VITAMINS [Concomitant]
  4. SUPRADYN [Concomitant]

REACTIONS (1)
  - HYPOPLASTIC ANAEMIA [None]
